FAERS Safety Report 7826711-3 (Version None)
Quarter: 2011Q4

REPORT INFORMATION
  Report Type: 
  Country: None (occurrence: None)
  Receive Date: 20111020
  Receipt Date: 20111014
  Transmission Date: 20120403
  Serious: Yes (Death)
  Sender: FDA-Public Use
  Company Number: US-CELGENEUS-163-21660-11080551

PATIENT
  Sex: Female

DRUGS (2)
  1. AVASTIN [Concomitant]
     Indication: BREAST CANCER
     Route: 041
     Dates: start: 20110509, end: 20110606
  2. ABRAXANE [Suspect]
     Dosage: 80 MILLIGRAM
     Route: 041
     Dates: start: 20110509, end: 20110606

REACTIONS (1)
  - DEATH [None]
